FAERS Safety Report 13668371 (Version 5)
Quarter: 2017Q3

REPORT INFORMATION
  Report Type: Spontaneous
  Country: JP (occurrence: JP)
  Receive Date: 20170620
  Receipt Date: 20170911
  Transmission Date: 20171127
  Serious: Yes (Hospitalization)
  Sender: FDA-Public Use
  Company Number: PHJP2017JP020066

PATIENT
  Age: 66 Year
  Sex: Male
  Weight: 63 kg

DRUGS (1)
  1. TASIGNA [Suspect]
     Active Substance: NILOTINIB
     Indication: CHRONIC MYELOID LEUKAEMIA
     Dosage: 150 MG, BID
     Route: 048
     Dates: start: 20170606, end: 20170610

REACTIONS (6)
  - Angina unstable [Recovered/Resolved]
  - Electrocardiogram QT prolonged [Recovering/Resolving]
  - Abdominal pain upper [Unknown]
  - Myocardial ischaemia [Recovering/Resolving]
  - Peripheral arterial occlusive disease [Recovering/Resolving]
  - Chest discomfort [Unknown]

NARRATIVE: CASE EVENT DATE: 20170608
